FAERS Safety Report 7911178-7 (Version None)
Quarter: 2011Q4

REPORT INFORMATION
  Report Type: 
  Country: None (occurrence: None)
  Receive Date: 20111114
  Receipt Date: 20111102
  Transmission Date: 20120403
  Serious: Yes (Other)
  Sender: FDA-Public Use
  Company Number: JP-JNJFOC-20110800395

PATIENT
  Age: 42 Year
  Sex: Male
  Weight: 49 kg

DRUGS (4)
  1. REMICADE [Suspect]
     Indication: COLITIS ULCERATIVE
     Route: 042
     Dates: start: 20110302
  2. REMICADE [Suspect]
     Route: 042
     Dates: start: 20110201
  3. PREDNISOLONE [Suspect]
     Indication: COLITIS ULCERATIVE
     Route: 048
     Dates: start: 20110201, end: 20110320
  4. ALL OTHER THERAPEUTICS [Concomitant]
     Indication: COLITIS ULCERATIVE
     Route: 048
     Dates: start: 20110201

REACTIONS (2)
  - HEPATIC AMOEBIASIS [None]
  - AMOEBIC COLITIS [None]
